FAERS Safety Report 9587787 (Version 2)
Quarter: 2013Q4

REPORT INFORMATION
  Report Type: Spontaneous
  Country: FR (occurrence: FR)
  Receive Date: 20131003
  Receipt Date: 20131003
  Transmission Date: 20140711
  Serious: Yes (Other)
  Sender: FDA-Public Use
  Company Number: FR-009507513-1204USA04259

PATIENT
  Age: 67 Year
  Sex: Male

DRUGS (12)
  1. EZETROL [Suspect]
     Indication: DYSLIPIDAEMIA
     Dosage: 10 MG, QD
     Route: 048
     Dates: start: 2004
  2. AMLOR [Suspect]
     Indication: HYPERTENSION
     Dosage: 10 MG, QD
     Route: 048
     Dates: start: 2004
  3. INIPOMP [Suspect]
     Dosage: 40 MG, QD
     Route: 048
     Dates: start: 2004, end: 20120307
  4. KARDEGIC [Suspect]
     Indication: CONGESTIVE CARDIOMYOPATHY
     Dosage: 75 MG, QD
     Route: 048
     Dates: start: 2004, end: 20120307
  5. VASTAREL [Suspect]
     Indication: CONGESTIVE CARDIOMYOPATHY
     Dosage: 2 DF, QD
     Dates: start: 2004, end: 20120307
  6. MOLSIDOMINE [Suspect]
     Indication: CONGESTIVE CARDIOMYOPATHY
     Dosage: 1 DF, TID
     Route: 048
     Dates: start: 2004
  7. MOLSIDOMINE [Suspect]
     Dosage: 1 DF, BID
     Route: 048
     Dates: start: 20120310
  8. CARDENSIEL [Suspect]
     Indication: CONGESTIVE CARDIOMYOPATHY
     Dosage: 2.5 MG, QD
     Route: 048
     Dates: start: 2004
  9. TAREG [Suspect]
     Indication: HYPERTENSION
     Dosage: 80 MG, QD
     Route: 048
     Dates: start: 2004
  10. CRESTOR [Suspect]
     Indication: DYSLIPIDAEMIA
     Dosage: 5 MG, QD
     Route: 048
     Dates: start: 2004, end: 2013
  11. IKOREL [Suspect]
     Indication: CONGESTIVE CARDIOMYOPATHY
     Dosage: 20 MG, BID
     Route: 048
     Dates: start: 2004
  12. PREVISCAN [Suspect]
     Indication: ATRIAL FIBRILLATION
     Dosage: 20 MG, QD
     Route: 048
     Dates: start: 2004

REACTIONS (1)
  - Hyperhidrosis [Recovered/Resolved]
